FAERS Safety Report 19996464 (Version 1)
Quarter: 2021Q4

REPORT INFORMATION
  Report Type: Spontaneous
  Country: US (occurrence: US)
  Receive Date: 20211025
  Receipt Date: 20211025
  Transmission Date: 20220303
  Serious: No
  Sender: FDA-Public Use
  Company Number: US-JNJFOC-20211010530

PATIENT
  Age: 51 Year
  Sex: Female
  Weight: 79.38 kg

DRUGS (16)
  1. TOPAMAX [Suspect]
     Active Substance: TOPIRAMATE
     Indication: Weight decreased
     Dosage: AT NIGHT
     Route: 048
  2. TOPAMAX [Suspect]
     Active Substance: TOPIRAMATE
     Indication: Bipolar disorder
  3. COVID-19 VACCINE [Concomitant]
  4. METFORMIN [Concomitant]
     Active Substance: METFORMIN HYDROCHLORIDE
     Indication: Diabetes mellitus
  5. TRAZODONE [Concomitant]
     Active Substance: TRAZODONE HYDROCHLORIDE
  6. TRADJENTA [Concomitant]
     Active Substance: LINAGLIPTIN
     Indication: Diabetes mellitus
  7. QUINAPRIL [Concomitant]
     Active Substance: QUINAPRIL
     Indication: Blood pressure measurement
  8. NIFEDIPINE [Concomitant]
     Active Substance: NIFEDIPINE
     Indication: Blood pressure measurement
  9. METOPROLOL SUCCINATE [Concomitant]
     Active Substance: METOPROLOL SUCCINATE
     Indication: Blood pressure measurement
  10. LURASIDONE [Concomitant]
     Active Substance: LURASIDONE
  11. LEVOTHYROXINE [Concomitant]
     Active Substance: LEVOTHYROXINE
     Dosage: 175 MCG
  12. ICOSAPENT ETHYL [Concomitant]
     Active Substance: ICOSAPENT ETHYL
     Indication: Blood triglycerides
     Dosage: 2 CAPSULES IN MORNING, 2 CAPSULES AT NIGHT
  13. GLIMEPIRIDE [Concomitant]
     Active Substance: GLIMEPIRIDE
     Indication: Diabetes mellitus
  14. ATORVASTATIN [Concomitant]
     Active Substance: ATORVASTATIN
     Indication: Blood cholesterol
  15. MOTRIN [Concomitant]
     Active Substance: IBUPROFEN
  16. BUPROPION [Concomitant]
     Active Substance: BUPROPION

REACTIONS (2)
  - Off label use [Unknown]
  - Product used for unknown indication [Unknown]
